FAERS Safety Report 7018666-9 (Version None)
Quarter: 2010Q3

REPORT INFORMATION
  Report Type: 
  Country: None (occurrence: None)
  Receive Date: 20100924
  Receipt Date: 20100914
  Transmission Date: 20110219
  Serious: Yes (Other)
  Sender: FDA-Public Use
  Company Number: AUR-APL-2010-02295

PATIENT
  Age: 37 Year
  Sex: Female

DRUGS (2)
  1. CITALOPRAM HYDROBROMIDE [Suspect]
     Indication: DEPRESSION
     Dosage: 20 MG UNK ORAL
     Route: 048
     Dates: start: 20100618, end: 20100902
  2. LEVOTHYROXINE [Concomitant]

REACTIONS (2)
  - DRUG INTERACTION [None]
  - THYROXINE FREE INCREASED [None]
